FAERS Safety Report 25194180 (Version 3)
Quarter: 2025Q3

REPORT INFORMATION
  Report Type: Spontaneous
  Country: US (occurrence: US)
  Receive Date: 20250414
  Receipt Date: 20250714
  Transmission Date: 20251021
  Serious: No
  Sender: SANOFI AVENTIS
  Company Number: US-SA-2025SA103617

PATIENT
  Age: 37 Year
  Sex: Female

DRUGS (3)
  1. DUPIXENT [Suspect]
     Active Substance: DUPILUMAB
     Indication: Dermatitis atopic
     Dosage: 300 MG, QOW
     Route: 058
     Dates: start: 202502
  2. FASENRA [Concomitant]
     Active Substance: BENRALIZUMAB
  3. FASENRA [Concomitant]
     Active Substance: BENRALIZUMAB

REACTIONS (9)
  - Rebound atopic dermatitis [Unknown]
  - Haemorrhage [Unknown]
  - Scratch [Unknown]
  - Scar [Unknown]
  - Rash [Unknown]
  - Miliaria [Unknown]
  - Erythema [Recovering/Resolving]
  - Pruritus [Recovering/Resolving]
  - Condition aggravated [Recovering/Resolving]

NARRATIVE: CASE EVENT DATE: 20250101
